FAERS Safety Report 17825638 (Version 5)
Quarter: 2020Q4

REPORT INFORMATION
  Report Type: Report from Study
  Country: JP (occurrence: JP)
  Receive Date: 20200526
  Receipt Date: 20201022
  Transmission Date: 20210113
  Serious: Yes (Death)
  Sender: FDA-Public Use
  Company Number: JP-PFIZER INC-2020180195

PATIENT
  Age: 12 Month
  Sex: Male
  Weight: 3.9 kg

DRUGS (12)
  1. E KEPPRA [Concomitant]
     Active Substance: LEVETIRACETAM
     Indication: DISEASE COMPLICATION
     Dosage: UNK
     Route: 048
     Dates: start: 20180910, end: 20181110
  2. REVATIO [Suspect]
     Active Substance: SILDENAFIL CITRATE
     Dosage: 0.67 MG, 3X/DAY
     Dates: start: 20180106, end: 20180207
  3. VOLIBRIS [Suspect]
     Active Substance: AMBRISENTAN
     Dosage: UNK
  4. ADCIRCA [Suspect]
     Active Substance: TADALAFIL
     Dosage: UNK
     Route: 048
     Dates: start: 20180731, end: 20181110
  5. REVATIO [Suspect]
     Active Substance: SILDENAFIL CITRATE
     Dosage: 3.33 MG, 3X/DAY
     Dates: start: 20180305, end: 20180731
  6. ADCIRCA [Suspect]
     Active Substance: TADALAFIL
     Indication: PULMONARY HYPERTENSION
     Dosage: UNK
     Route: 048
     Dates: start: 20171213, end: 20171217
  7. VOLIBRIS [Suspect]
     Active Substance: AMBRISENTAN
     Indication: PULMONARY HYPERTENSION
     Dosage: UNK
     Route: 048
     Dates: start: 20171213, end: 20171215
  8. REVATIO [Suspect]
     Active Substance: SILDENAFIL CITRATE
     Dosage: 1.33 MG, 3X/DAY
     Dates: start: 20180208, end: 20180214
  9. FLOLAN [Suspect]
     Active Substance: EPOPROSTENOL SODIUM
     Indication: PULMONARY HYPERTENSION
     Dosage: UNK
     Route: 041
     Dates: start: 20171027
  10. REVATIO [Suspect]
     Active Substance: SILDENAFIL CITRATE
     Indication: PULMONARY HYPERTENSION
     Dosage: 1.33 MG, 3X/DAY
     Route: 048
     Dates: start: 20171124, end: 20171213
  11. REVATIO [Suspect]
     Active Substance: SILDENAFIL CITRATE
     Dosage: 2 MG, 3X/DAY
     Dates: start: 20180215, end: 20180225
  12. REVATIO [Suspect]
     Active Substance: SILDENAFIL CITRATE
     Dosage: 2.67 MG, 3X/DAY
     Dates: start: 20180226, end: 20180304

REACTIONS (4)
  - Oliguria [Fatal]
  - Blood pressure decreased [Fatal]
  - Pulmonary congestion [Fatal]
  - Disease recurrence [Fatal]

NARRATIVE: CASE EVENT DATE: 20181011
